FAERS Safety Report 12326459 (Version 1)
Quarter: 2016Q2

REPORT INFORMATION
  Report Type: Spontaneous
  Country: US (occurrence: None)
  Receive Date: 20160502
  Receipt Date: 20160502
  Transmission Date: 20160815
  Serious: Yes (Other)
  Sender: FDA-Public Use
  Company Number: None

PATIENT
  Age: 82 Year
  Sex: Male
  Weight: 61.69 kg

DRUGS (3)
  1. BACLOFEN. [Suspect]
     Active Substance: BACLOFEN
     Indication: MUSCLE SPASMS
     Dosage: 2 TABLET(S) EVERY 8 HOURAS TAKEN BY MOUTH
     Route: 048
     Dates: start: 20160427, end: 20160427
  2. BACLOFEN. [Suspect]
     Active Substance: BACLOFEN
     Indication: PAIN
     Dosage: 2 TABLET(S) EVERY 8 HOURAS TAKEN BY MOUTH
     Route: 048
     Dates: start: 20160427, end: 20160427
  3. IBUPROFEN. [Concomitant]
     Active Substance: IBUPROFEN

REACTIONS (6)
  - Abnormal behaviour [None]
  - General physical condition abnormal [None]
  - Hallucination [None]
  - Fatigue [None]
  - Emotional distress [None]
  - Screaming [None]

NARRATIVE: CASE EVENT DATE: 20160428
